FAERS Safety Report 6762393-X (Version None)
Quarter: 2010Q2

REPORT INFORMATION
  Report Type: 
  Country: None (occurrence: None)
  Receive Date: 20100609
  Receipt Date: 20100528
  Transmission Date: 20101027
  Serious: Yes (Other)
  Sender: FDA-Public Use
  Company Number: US-ELI_LILLY_AND_COMPANY-US201005006661

PATIENT
  Sex: Male
  Weight: 104.8 kg

DRUGS (16)
  1. BYETTA [Suspect]
     Indication: TYPE 2 DIABETES MELLITUS
     Dosage: 5 UG, 2/D
     Dates: start: 20100428, end: 20100501
  2. ACE INHIBITOR NOS [Concomitant]
  3. ANGIOTENSIN II ANTAGONISTS [Concomitant]
  4. ALBUTEROL [Concomitant]
     Dosage: UNK, AS NEEDED
  5. ANDROGEL [Concomitant]
     Dosage: 7.5 MG, DAILY (1/D)
  6. ASPIRIN [Concomitant]
     Dosage: 81 MG, DAILY (1/D)
     Route: 048
  7. BYSTOLIC [Concomitant]
     Dosage: 5 MG, DAILY (1/D)
     Route: 048
  8. CARDIZEM LA [Concomitant]
     Dosage: 360 MG, DAILY (1/D)
     Route: 048
  9. CRESTOR [Concomitant]
     Dosage: 5 MG, DAILY (1/D)
     Route: 048
  10. DIOVAN [Concomitant]
     Dosage: 320 MG, DAILY (1/D)
     Route: 048
  11. FLOMAX [Concomitant]
     Dosage: 0.4 MG, DAILY (1/D)
     Route: 048
  12. NASONEX [Concomitant]
     Dosage: UNK, AS NEEDED
  13. NEXIUM [Concomitant]
     Dosage: 40 MG, 2/D
     Route: 048
  14. OCUVITE LUTEIN /02382601/ [Concomitant]
     Dosage: 1 D/F, 2/D
     Route: 048
  15. SINGULAIR [Concomitant]
     Dosage: 10 MG, DAILY (1/D)
     Route: 048
  16. ZOMIG [Concomitant]
     Dosage: 2.5 MG, AS NEEDED
     Route: 048

REACTIONS (4)
  - BACK PAIN [None]
  - HEPATITIS [None]
  - PANCREATITIS [None]
  - WEIGHT DECREASED [None]
